FAERS Safety Report 11092754 (Version 1)
Quarter: 2015Q2

REPORT INFORMATION
  Report Type: Spontaneous
  Country: US (occurrence: None)
  Receive Date: 20150505
  Receipt Date: 20150505
  Transmission Date: 20150821
  Serious: Yes (Other)
  Sender: FDA-Public Use
  Company Number: None

PATIENT
  Age: 56 Year
  Sex: Female
  Weight: 72.58 kg

DRUGS (1)
  1. VALACYCLOVIR [Suspect]
     Active Substance: VALACYCLOVIR HYDROCHLORIDE
     Indication: ORAL HERPES
     Dosage: 4 TABLETS, TWICE DAILY, TAKEN BY MOUTH
     Route: 048

REACTIONS (9)
  - Pain [None]
  - Swelling [None]
  - Chills [None]
  - Rash [None]
  - Pyrexia [None]
  - Skin striae [None]
  - Pruritus [None]
  - Urticaria [None]
  - Paraesthesia oral [None]

NARRATIVE: CASE EVENT DATE: 20150502
